FAERS Safety Report 20191085 (Version 1)
Quarter: 2021Q4

REPORT INFORMATION
  Report Type: Spontaneous
  Country: JP (occurrence: JP)
  Receive Date: 20211216
  Receipt Date: 20211216
  Transmission Date: 20220303
  Serious: Yes (Other)
  Sender: FDA-Public Use
  Company Number: JP-BEH-2021139260

PATIENT
  Age: 3 Year
  Sex: Female
  Weight: 12.4 kg

DRUGS (2)
  1. HUMAN IMMUNOGLOBULIN G [Suspect]
     Active Substance: HUMAN IMMUNOGLOBULIN G
     Indication: Infection
     Route: 065
  2. HUMAN IMMUNOGLOBULIN G [Suspect]
     Active Substance: HUMAN IMMUNOGLOBULIN G
     Indication: Neutropenia

REACTIONS (5)
  - Hypoxia [Unknown]
  - Pulmonary oedema [Unknown]
  - Pleural effusion [Unknown]
  - No adverse event [Unknown]
  - Off label use [Unknown]
